FAERS Safety Report 9514742 (Version 2)
Quarter: 2013Q3

REPORT INFORMATION
  Report Type: Spontaneous
  Country: CA (occurrence: CA)
  Receive Date: 20130911
  Receipt Date: 20130911
  Transmission Date: 20140515
  Serious: Yes (Other)
  Sender: FDA-Public Use
  Company Number: CA-ASTRAZENECA-2013SE65311

PATIENT
  Age: 57 Year
  Sex: Female

DRUGS (5)
  1. BRILINTA [Suspect]
     Indication: CORONARY ARTERIAL STENT INSERTION
     Route: 048
  2. BRILINTA [Suspect]
     Indication: ACUTE CORONARY SYNDROME
     Route: 048
  3. ATORVASTATIN [Suspect]
     Route: 065
  4. OTHER MEDICATIONS [Concomitant]
  5. STATIN [Concomitant]

REACTIONS (1)
  - Hepatic enzyme increased [Recovered/Resolved]
